FAERS Safety Report 4386081-2 (Version None)
Quarter: 2004Q2

REPORT INFORMATION
  Report Type: 
  Country: None (occurrence: None)
  Receive Date: 20040617
  Receipt Date: 20030523
  Transmission Date: 20050107
  Serious: Yes (Life-Threatening, Other)
  Sender: FDA-Public Use
  Company Number: C2003-1262.01

PATIENT
  Sex: Male

DRUGS (1)
  1. THIORIDAZINE HCL [Suspect]
     Indication: INSOMNIA
     Dosage: 20 MG, Q HS, ORAL
     Route: 048
     Dates: start: 20000101, end: 20030410

REACTIONS (3)
  - ELECTROCARDIOGRAM QT PROLONGED [None]
  - PALPITATIONS [None]
  - TREMOR [None]
